FAERS Safety Report 5895975-8 (Version None)
Quarter: 2008Q3

REPORT INFORMATION
  Report Type: 
  Country: None (occurrence: None)
  Receive Date: 20080828
  Receipt Date: 20070725
  Transmission Date: 20090109
  Serious: Yes (Other)
  Sender: FDA-Public Use
  Company Number: 159416USA

PATIENT
  Sex: Female

DRUGS (1)
  1. METOCLOPRAMIDE [Suspect]
     Indication: GASTROOESOPHAGEAL REFLUX DISEASE
     Dates: start: 20000501, end: 20040601

REACTIONS (5)
  - DYSKINESIA [None]
  - DYSPHAGIA [None]
  - DYSTONIA [None]
  - GAIT DISTURBANCE [None]
  - TARDIVE DYSKINESIA [None]
